FAERS Safety Report 17427237 (Version 2)
Quarter: 2020Q2

REPORT INFORMATION
  Report Type: Spontaneous
  Country: US (occurrence: US)
  Receive Date: 20200217
  Receipt Date: 20200402
  Transmission Date: 20200713
  Serious: No
  Sender: FDA-Public Use
  Company Number: US-LEXICON PHARMACEUTICALS, INC-20-1606-00098

PATIENT
  Age: 60 Year
  Sex: Male

DRUGS (9)
  1. FOLIC ACID. [Concomitant]
     Active Substance: FOLIC ACID
  2. DOCUSATE [Concomitant]
     Active Substance: DOCUSATE
  3. CHOLECALCIFEROL [Concomitant]
     Active Substance: CHOLECALCIFEROL
  4. MVI [Concomitant]
     Active Substance: VITAMINS
  5. OCTREOTIDE. [Concomitant]
     Active Substance: OCTREOTIDE
  6. TAMSULOSIN [Concomitant]
     Active Substance: TAMSULOSIN
  7. XERMELO [Suspect]
     Active Substance: TELOTRISTAT ETHYL
     Indication: CARCINOID SYNDROME
     Dates: start: 20200206
  8. LOPERAMIDE [Concomitant]
     Active Substance: LOPERAMIDE
  9. XERMELO [Suspect]
     Active Substance: TELOTRISTAT ETHYL

REACTIONS (2)
  - Rash [Unknown]
  - Off label use [Unknown]

NARRATIVE: CASE EVENT DATE: 20200208
